FAERS Safety Report 12597600 (Version 7)
Quarter: 2016Q4

REPORT INFORMATION
  Report Type: Spontaneous
  Country: US (occurrence: US)
  Receive Date: 20160727
  Receipt Date: 20161122
  Transmission Date: 20170207
  Serious: Yes (Death, Hospitalization, Other)
  Sender: FDA-Public Use
  Company Number: US-PFIZER INC-2016338001

PATIENT
  Age: 74 Year
  Sex: Male
  Weight: 60.33 kg

DRUGS (5)
  1. IBRANCE [Suspect]
     Active Substance: PALBOCICLIB
     Indication: SALIVARY GLAND CANCER
     Dosage: 125 MG, CYCLIC (DAY AND DAYS 1-21)
     Route: 048
     Dates: start: 20160624, end: 20160910
  2. FUROSEMIDE. [Concomitant]
     Active Substance: FUROSEMIDE
     Indication: CARDIAC FAILURE CONGESTIVE
     Dosage: 40MG ONCE DAILY
  3. KLOR-CON [Concomitant]
     Active Substance: POTASSIUM CHLORIDE
     Dosage: 10MG ONCE DAILY
  4. MAGNESIUM OXIDE. [Concomitant]
     Active Substance: MAGNESIUM OXIDE
     Dosage: 400MG TWICE DAILY
  5. IBRANCE [Suspect]
     Active Substance: PALBOCICLIB
     Indication: NON-SMALL CELL LUNG CANCER STAGE IV
     Dosage: 125MG, ONCE DAILY
     Route: 048
     Dates: start: 20160624

REACTIONS (6)
  - Red blood cell count decreased [Not Recovered/Not Resolved]
  - Product label issue [Not Recovered/Not Resolved]
  - Death [Fatal]
  - Product use issue [Not Recovered/Not Resolved]
  - White blood cell count decreased [Not Recovered/Not Resolved]
  - Cytopenia [Recovered/Resolved]

NARRATIVE: CASE EVENT DATE: 20160626
